FAERS Safety Report 16968053 (Version 1)
Quarter: 2019Q4

REPORT INFORMATION
  Report Type: Spontaneous
  Country: GB (occurrence: GB)
  Receive Date: 20191028
  Receipt Date: 20191028
  Transmission Date: 20200122
  Serious: Yes (Other)
  Sender: FDA-Public Use
  Company Number: GB-BIOVITRUM-2019GB3338

PATIENT
  Age: 34 Year
  Sex: Female

DRUGS (1)
  1. KINERET [Suspect]
     Active Substance: ANAKINRA
     Indication: STILL^S DISEASE
     Route: 058

REACTIONS (13)
  - Drug reaction with eosinophilia and systemic symptoms [Unknown]
  - Oedema peripheral [Unknown]
  - Periorbital swelling [Unknown]
  - C-reactive protein increased [Unknown]
  - Rash pruritic [Unknown]
  - Pyrexia [Unknown]
  - Decreased appetite [Unknown]
  - Vomiting [Unknown]
  - Off label use [Unknown]
  - Lymphadenopathy [Unknown]
  - Rash [Unknown]
  - Serum ferritin increased [Unknown]
  - Eosinophilia [Unknown]
